FAERS Safety Report 8790632 (Version 1)
Quarter: 2012Q4

REPORT INFORMATION
  Report Type: Spontaneous
  Country: US (occurrence: None)
  Receive Date: 20120912
  Receipt Date: 20120912
  Transmission Date: 20130627
  Serious: Yes (Hospitalization)
  Sender: FDA-Public Use
  Company Number: None

PATIENT
  Age: 47 Year
  Sex: Female
  Weight: 94 kg

DRUGS (18)
  1. COMPLERA [Suspect]
     Indication: HIV INFECTION
     Route: 048
  2. GLIPIZIDE [Concomitant]
  3. ZOCOR [Concomitant]
  4. METFORMIN [Concomitant]
  5. HEMOLOG [Concomitant]
  6. LISINOPRIL [Concomitant]
  7. LOVAZA [Concomitant]
  8. FENOFIBRATE [Concomitant]
  9. METFORMIN [Concomitant]
  10. HUMALOG [Concomitant]
  11. LISINOPRIL [Concomitant]
  12. DESMOPRESSIN [Concomitant]
  13. ERGOCALCIFEROL [Concomitant]
  14. NOVOLOG [Concomitant]
  15. NEXIUM [Concomitant]
  16. METOCLOPRAMIDE [Concomitant]
  17. SODIUM BICARBONATE [Concomitant]
  18. HEPARIN [Concomitant]

REACTIONS (1)
  - Renal failure acute [None]
